FAERS Safety Report 16474890 (Version 1)
Quarter: 2019Q3

REPORT INFORMATION
  Report Type: Spontaneous
  Country: US (occurrence: US)
  Receive Date: 20190624
  Receipt Date: 20190624
  Transmission Date: 20191004
  Serious: Yes (Life-Threatening, Hospitalization, Other)
  Sender: FDA-Public Use
  Company Number: None

PATIENT
  Age: 7 Year
  Sex: Male

DRUGS (2)
  1. ZOLOFT [Concomitant]
     Active Substance: SERTRALINE HYDROCHLORIDE
  2. SINGULAIR [Suspect]
     Active Substance: MONTELUKAST SODIUM
     Indication: ASTHMA
     Route: 048
     Dates: start: 20080530, end: 20130215

REACTIONS (6)
  - Quality of life decreased [None]
  - Hallucination, auditory [None]
  - Anxiety disorder [None]
  - Suicide attempt [None]
  - Aggression [None]
  - Mental disorder [None]

NARRATIVE: CASE EVENT DATE: 20130107
